FAERS Safety Report 10967098 (Version 4)
Quarter: 2019Q4

REPORT INFORMATION
  Report Type: Spontaneous
  Country: US (occurrence: US)
  Receive Date: 20150330
  Receipt Date: 20191210
  Transmission Date: 20200122
  Serious: Yes (Hospitalization, Other)
  Sender: FDA-Public Use
  Company Number: US-009507513-1202USA01416

PATIENT
  Sex: Female
  Weight: 67.12 kg

DRUGS (5)
  1. FOSAMAX PLUS D [Suspect]
     Active Substance: ALENDRONATE SODIUM\CHOLECALCIFEROL
     Indication: OSTEOPOROSIS
     Dosage: 70 MG, UNK
     Route: 048
     Dates: end: 201002
  2. ALENDRONATE SODIUM. [Suspect]
     Active Substance: ALENDRONATE SODIUM
     Indication: OSTEOPOROSIS
     Dosage: UNK
     Route: 048
     Dates: start: 200802, end: 2010
  3. CORTICOSTEROIDS (UNSPECIFIED) [Concomitant]
     Active Substance: UNSPECIFIED INGREDIENT
     Dosage: UNK
     Dates: start: 1992
  4. ALENDRONATE SODIUM. [Suspect]
     Active Substance: ALENDRONATE SODIUM
     Indication: OSTEOPOROSIS
     Dates: start: 200802, end: 2010
  5. FOSAMAX [Suspect]
     Active Substance: ALENDRONATE SODIUM
     Indication: OSTEOPOROSIS
     Dosage: 70 MG, UNK
     Route: 048
     Dates: end: 201002

REACTIONS (31)
  - Hip fracture [Unknown]
  - Device loosening [Unknown]
  - Haematoma [Unknown]
  - Haematoma [Unknown]
  - Low turnover osteopathy [Unknown]
  - Stress fracture [Unknown]
  - Posterior tibial tendon dysfunction [Unknown]
  - Bone disorder [Unknown]
  - Maternal exposure before pregnancy [Recovered/Resolved]
  - Foot fracture [Unknown]
  - Foot deformity [Unknown]
  - Stress fracture [Unknown]
  - Aneurysm [Unknown]
  - Nephrolithiasis [Unknown]
  - Stress fracture [Unknown]
  - Ligament rupture [Unknown]
  - Femur fracture [Unknown]
  - Gestational diabetes [Recovered/Resolved]
  - Haematoma [Unknown]
  - Injury [Unknown]
  - Immune system disorder [Unknown]
  - Synovial cyst [Unknown]
  - Hip fracture [Unknown]
  - Femur fracture [Recovered/Resolved]
  - Medical device site joint infection [Unknown]
  - Sinus tarsi syndrome [Unknown]
  - Tenosynovitis [Unknown]
  - Fracture nonunion [Unknown]
  - Osteonecrosis [Unknown]
  - Road traffic accident [Unknown]
  - Spinal osteoarthritis [Unknown]

NARRATIVE: CASE EVENT DATE: 2000
